FAERS Safety Report 4320195-8 (Version None)
Quarter: 2004Q1

REPORT INFORMATION
  Report Type: 
  Country: None (occurrence: None)
  Receive Date: 20040317
  Receipt Date: 20040311
  Transmission Date: 20041129
  Serious: Yes (Hospitalization)
  Sender: FDA-Public Use
  Company Number: FRWYE077531MAR03

PATIENT
  Age: 29 Year
  Sex: Female

DRUGS (6)
  1. OXAZEPAM [Suspect]
     Dosage: UNSPECIFIED AMOUNT
     Route: 048
     Dates: start: 20030213
  2. EQUANIL [Suspect]
     Dosage: ORAL
     Route: 048
     Dates: start: 20030213, end: 20030214
  3. LEXOMIL (BROMAZEPINE) [Suspect]
     Dosage: ORAL
     Route: 048
     Dates: start: 20030213, end: 20030214
  4. MEPRONIZINE (ACEPROMETAZINE/MEPROBAMATE) [Suspect]
     Route: 048
     Dates: start: 20040213, end: 20040214
  5. PROZAC (FLUOXETINE HYDROCHLORORIDE) [Suspect]
     Dosage: ORAL
     Route: 048
     Dates: start: 20030213
  6. TERCIAN (CYAMEMAZINE) [Suspect]
     Route: 048
     Dates: start: 20030213, end: 20030214

REACTIONS (5)
  - COMPLICATIONS OF MATERNAL EXPOSURE TO THERAPEUTIC DRUGS [None]
  - INTENTIONAL OVERDOSE [None]
  - PREMATURE LABOUR [None]
  - SOMNOLENCE [None]
  - SUICIDE ATTEMPT [None]
